FAERS Safety Report 8533274 (Version 3)
Quarter: 2012Q4

REPORT INFORMATION
  Report Type: 
  Country: US (occurrence: US)
  Receive Date: 20120427
  Receipt Date: 20120913
  Transmission Date: 20130627
  Serious: Yes (Hospitalization)
  Sender: FDA-Public Use
  Company Number: US-BAYER-2012-039773

PATIENT
  Age: 29 Year
  Sex: Female
  Weight: 126.98 kg

DRUGS (12)
  1. YAZ [Suspect]
     Indication: CONTRACEPTION
     Dosage: UNK
     Dates: start: 20090306, end: 20090602
  2. ALEVE [Concomitant]
     Dosage: 220 mg, TID prn
     Route: 048
  3. BENADRYL [Concomitant]
     Dosage: 1 to 2 tablets Q HS, prn
     Route: 048
  4. LAMICTAL [Concomitant]
     Dosage: 100 mg, daily
     Route: 048
     Dates: start: 20090507
  5. LITHIUM [Concomitant]
     Dosage: 600 mg, daily
     Route: 048
     Dates: start: 20090311, end: 20090506
  6. RISPERDAL [Concomitant]
     Dosage: 2 mg, Q HS
     Route: 048
     Dates: start: 20090413, end: 20090506
  7. FLONASE [Concomitant]
     Dosage: 2 puff(s), daily prn
     Route: 045
  8. CLONAZEPAM [Concomitant]
     Dosage: 1 mg, UNK
     Dates: start: 20090311
  9. PERCOCET [Concomitant]
     Indication: PAIN
  10. VICODIN [Concomitant]
     Dosage: 10 mg/500 mg
  11. LISINOPRIL [Concomitant]
     Indication: HYPERTENSION
     Dosage: 5 mg, QD
     Dates: start: 20080707, end: 2011
  12. CARBAMAZEPINE [Concomitant]
     Indication: BIPOLAR DISORDER
     Dosage: UNK
     Dates: start: 20080731, end: 20101129

REACTIONS (10)
  - Pulmonary embolism [None]
  - Injury [None]
  - Pain [None]
  - General physical health deterioration [None]
  - Emotional distress [None]
  - Anxiety [None]
  - Pain [None]
  - Pain [None]
  - Back pain [None]
  - Contusion [None]
